FAERS Safety Report 8249133-2 (Version None)
Quarter: 2012Q2

REPORT INFORMATION
  Report Type: 
  Country: None (occurrence: None)
  Receive Date: 20120402
  Receipt Date: 20120328
  Transmission Date: 20120825
  Serious: No
  Sender: FDA-Public Use
  Company Number: US-PFIZER INC-2012079967

PATIENT
  Sex: Female
  Weight: 91 kg

DRUGS (5)
  1. SPIRIVA [Concomitant]
     Dosage: UNK
  2. ALBUTEROL SULFATE [Concomitant]
     Dosage: UNK
  3. PROTONIX [Suspect]
     Indication: ULCER HAEMORRHAGE
     Dosage: UNK
     Dates: start: 20110101
  4. ADVAIR DISKUS 100/50 [Concomitant]
     Dosage: [FLUTICASONE PROPRIONATE 250 MCG/ SALMETEROL XINAFOATE 50 UG] UNK
  5. DIOVAN HCT [Concomitant]
     Dosage: [HYDROCHLOROTHIAZIDE 25 MG/ VALSARTAN 160 MG]
     Route: 048

REACTIONS (1)
  - PAIN [None]
